FAERS Safety Report 23133901 (Version 1)
Quarter: 2023Q4

REPORT INFORMATION
  Report Type: Report from Study
  Country: ES (occurrence: ES)
  Receive Date: 20231101
  Receipt Date: 20231101
  Transmission Date: 20240110
  Serious: Yes (Death)
  Sender: FDA-Public Use
  Company Number: ES-PFIZER INC-202300350682

PATIENT
  Sex: Male

DRUGS (5)
  1. DOCETAXEL [Suspect]
     Active Substance: DOCETAXEL\DOCETAXEL ANHYDROUS
     Indication: Hormone-dependent prostate cancer
     Dosage: X 3 CYCLES
  2. DOCETAXEL [Suspect]
     Active Substance: DOCETAXEL\DOCETAXEL ANHYDROUS
     Dosage: X 3 CYCLES
  3. IPILIMUMAB [Suspect]
     Active Substance: IPILIMUMAB
     Indication: Hormone-dependent prostate cancer
     Dosage: 3W X 2 CYCLES
  4. IPILIMUMAB [Suspect]
     Active Substance: IPILIMUMAB
     Dosage: 3W X 2 CYCLES
  5. NIVOLUMAB [Suspect]
     Active Substance: NIVOLUMAB
     Indication: Hormone-dependent prostate cancer
     Dosage: X 12 MO

REACTIONS (1)
  - Immune-mediated encephalitis [Fatal]
